FAERS Safety Report 8913955 (Version 2)
Quarter: 2013Q1

REPORT INFORMATION
  Report Type: Spontaneous
  Country: US (occurrence: US)
  Receive Date: 20121119
  Receipt Date: 20130206
  Transmission Date: 20140127
  Serious: Yes (Hospitalization, Other)
  Sender: FDA-Public Use
  Company Number: US-ELI_LILLY_AND_COMPANY-US201211002391

PATIENT
  Sex: Male
  Weight: 129.25 kg

DRUGS (4)
  1. HUMALOG LISPRO [Suspect]
     Indication: DIABETES MELLITUS
     Dosage: 12 U, TID
     Dates: start: 201208
  2. HUMALOG LISPRO [Suspect]
     Dosage: UNK, PRN
  3. LANTUS [Concomitant]
     Dosage: UNK, UNKNOWN
  4. ANTIHYPERTENSIVES [Concomitant]
     Dosage: UNK, UNKNOWN

REACTIONS (1)
  - Cerebrovascular accident [Unknown]
